FAERS Safety Report 7384892-2 (Version None)
Quarter: 2011Q1

REPORT INFORMATION
  Report Type: 
  Country: None (occurrence: None)
  Receive Date: 20110330
  Receipt Date: 20110318
  Transmission Date: 20110831
  Serious: Yes (Hospitalization)
  Sender: FDA-Public Use
  Company Number: FR-GENENTECH-314833

PATIENT
  Sex: Female

DRUGS (9)
  1. LEVOTHYROXINE SODIUM [Concomitant]
     Indication: PRODUCT USED FOR UNKNOWN INDICATION
     Dosage: 200 A?G, UNK
  2. SOMATROPIN [Suspect]
     Dosage: 1.8 MG, 6/WEEK
     Route: 058
     Dates: start: 20100625
  3. AVLOCARDYL [Concomitant]
     Indication: PRODUCT USED FOR UNKNOWN INDICATION
     Dosage: 50 MG, UNK
  4. MINIRIN [Concomitant]
     Indication: PRODUCT USED FOR UNKNOWN INDICATION
     Dosage: 140 A?G, UNK
  5. HYDROCORTISONE [Concomitant]
     Indication: PRODUCT USED FOR UNKNOWN INDICATION
     Dosage: 80 MG, QD
  6. SOMATROPIN [Suspect]
     Indication: GROWTH HORMONE DEFICIENCY
     Dosage: UNK MG, 6/WEEK
     Route: 058
     Dates: start: 20060524, end: 20090107
  7. SOMATROPIN [Suspect]
     Indication: HYPOPITUITARISM
     Dosage: 1.6 MG, 6/WEEK
     Route: 058
     Dates: start: 20090108, end: 20091021
  8. AMITRIPTYLINE HCL [Concomitant]
     Indication: PRODUCT USED FOR UNKNOWN INDICATION
     Dosage: 50 MG, UNK
  9. SOMATROPIN [Suspect]
     Dosage: 1.8 MG, 6/WEEK
     Route: 058

REACTIONS (1)
  - OSTEOTOMY [None]
